FAERS Safety Report 11112316 (Version 4)
Quarter: 2016Q1

REPORT INFORMATION
  Report Type: Spontaneous
  Country: US (occurrence: US)
  Receive Date: 20150514
  Receipt Date: 20160301
  Transmission Date: 20160525
  Serious: No
  Sender: FDA-Public Use
  Company Number: US-PFIZER INC-2015162322

PATIENT
  Age: 55 Year
  Sex: Male

DRUGS (2)
  1. IBRANCE [Suspect]
     Active Substance: PALBOCICLIB
     Dosage: 100 MG, DAILY 21 DAYS ON AND 7 DAYS OFF
     Route: 048
     Dates: start: 20150423, end: 20160219
  2. IBRANCE [Suspect]
     Active Substance: PALBOCICLIB
     Indication: NEOPLASM MALIGNANT
     Dosage: 125 MG, 1X/DAY (X 3 WEEKS)
     Dates: start: 201504

REACTIONS (7)
  - Vomiting [Unknown]
  - Paraesthesia [Unknown]
  - Rash pruritic [Unknown]
  - Product use issue [Unknown]
  - Disease progression [Unknown]
  - Neoplasm malignant [Unknown]
  - Dizziness [Unknown]
